FAERS Safety Report 4944341-8 (Version None)
Quarter: 2006Q1

REPORT INFORMATION
  Report Type: 
  Country: None (occurrence: None)
  Receive Date: 20060315
  Receipt Date: 20050114
  Transmission Date: 20060701
  Serious: Yes (Hospitalization, Other)
  Sender: FDA-Public Use
  Company Number: US-MERCK-0501USA02706

PATIENT
  Age: 57 Year
  Sex: Male
  Weight: 81 kg

DRUGS (1)
  1. VIOXX [Suspect]
     Indication: ARTHRITIS
     Route: 048
     Dates: start: 20030101, end: 20040421

REACTIONS (2)
  - ANGIOPATHY [None]
  - MYOCARDIAL INFARCTION [None]
